FAERS Safety Report 5685014-6 (Version None)
Quarter: 2008Q1

REPORT INFORMATION
  Report Type: 
  Country: None (occurrence: None)
  Receive Date: 20080328
  Receipt Date: 19970718
  Transmission Date: 20080703
  Serious: Yes (Death, Other)
  Sender: FDA-Public Use
  Company Number: GB-ROCHE-84174

PATIENT

DRUGS (1)
  1. ROCEPHIN [Suspect]
     Indication: MENINGITIS
     Route: 065

REACTIONS (2)
  - DEATH [None]
  - DRUG INEFFECTIVE [None]
